FAERS Safety Report 6443116 (Version 2)
Quarter: 2012Q4

REPORT INFORMATION
  Report Type: 
  Country: US (occurrence: US)
  Receive Date: 20071016
  Receipt Date: 20121219
  Transmission Date: 20130627
  Serious: Yes (Death, Hospitalization)
  Sender: FDA-Public Use
  Company Number: US-RANBAXY-2007US-10591

PATIENT
  Age: 82 Year
  Sex: Female

DRUGS (1)
  1. ISOPTIN SR [Suspect]
     Indication: PRODUCT USED FOR UNKNOWN INDICATION
     Dosage: UNK
     Route: 048

REACTIONS (2)
  - Intentional overdose [Unknown]
  - Death [Fatal]
